FAERS Safety Report 21245667 (Version 1)
Quarter: 2022Q3

REPORT INFORMATION
  Report Type: Spontaneous
  Country: ZA (occurrence: None)
  Receive Date: 20220824
  Receipt Date: 20220824
  Transmission Date: 20221027
  Serious: Yes (Hospitalization, Other)
  Sender: FDA-Public Use
  Company Number: 2022A289904

PATIENT
  Age: 83 Year
  Sex: Male

DRUGS (9)
  1. BUDESONIDE\FORMOTEROL FUMARATE DIHYDRATE [Suspect]
     Active Substance: BUDESONIDE\FORMOTEROL FUMARATE DIHYDRATE
     Indication: Prostatic operation
     Dosage: 160 UG, TWO TIMES A DAY
     Route: 055
  2. ATORVASTATIN [Concomitant]
     Active Substance: ATORVASTATIN
     Indication: Blood cholesterol
     Route: 048
  3. ALZIDO [Concomitant]
     Indication: Dementia
     Route: 048
  4. UROMAX [Concomitant]
     Indication: Prostate ablation
     Route: 048
  5. ENALAPRIL [Concomitant]
     Active Substance: ENALAPRIL
     Indication: Hypertension
     Route: 048
  6. SPIRACTIN [Concomitant]
     Indication: Hypertension
     Route: 048
  7. FUROSEMIDE [Concomitant]
     Active Substance: FUROSEMIDE
     Indication: Hypertension
     Route: 048
  8. CARVEDILOL [Concomitant]
     Active Substance: CARVEDILOL
     Indication: Hypertension
     Route: 048
  9. PERINDOPRIL [Concomitant]
     Active Substance: PERINDOPRIL
     Indication: Hypertension
     Route: 048

REACTIONS (1)
  - Cardiac failure [Unknown]
